FAERS Safety Report 11675795 (Version 1)
Quarter: 2015Q4

REPORT INFORMATION
  Report Type: Spontaneous
  Country: US (occurrence: US)
  Receive Date: 20151027
  Receipt Date: 20151027
  Transmission Date: 20160304
  Serious: No
  Sender: FDA-Public Use
  Company Number: US-ELI_LILLY_AND_COMPANY-US201009003290

PATIENT
  Age: 59 Year
  Sex: Female

DRUGS (5)
  1. NEXIUM [Concomitant]
     Active Substance: ESOMEPRAZOLE MAGNESIUM
  2. CALCIUM [Concomitant]
     Active Substance: CALCIUM
  3. FORTEO [Suspect]
     Active Substance: TERIPARATIDE
     Indication: OSTEOPOROSIS
     Dosage: 20 UG, DAILY (1/D)
  4. ASMANEX [Concomitant]
     Active Substance: MOMETASONE FUROATE
  5. VITAMIN D [Concomitant]
     Active Substance: CHOLECALCIFEROL

REACTIONS (11)
  - Collagen disorder [Unknown]
  - Bone disorder [Unknown]
  - Fall [Recovered/Resolved]
  - Erythema [Unknown]
  - Patella fracture [Recovered/Resolved]
  - Wrist fracture [Recovered/Resolved]
  - Medication error [Unknown]
  - Quality of life decreased [Unknown]
  - Laceration [Unknown]
  - Skin disorder [Unknown]
  - Foot fracture [Recovered/Resolved]
